FAERS Safety Report 5477007-9 (Version None)
Quarter: 2007Q4

REPORT INFORMATION
  Report Type: 
  Country: None (occurrence: None)
  Receive Date: 20071004
  Receipt Date: 20070924
  Transmission Date: 20080405
  Serious: Yes (Other)
  Sender: FDA-Public Use
  Company Number: US-KINGPHARMUSA00001-K200701233

PATIENT

DRUGS (1)
  1. ALTACE [Suspect]
     Indication: HYPERTENSION
     Dosage: 10 MG, QD
     Route: 048
     Dates: start: 20040101, end: 20070430

REACTIONS (5)
  - DIFFUSE VASCULITIS [None]
  - EPIDIDYMITIS [None]
  - LUNG INFILTRATION [None]
  - PURPURA [None]
  - VASCULITIS [None]
